FAERS Safety Report 7755333-8 (Version None)
Quarter: 2011Q3

REPORT INFORMATION
  Report Type: 
  Country: None (occurrence: None)
  Receive Date: 20110916
  Receipt Date: 20101014
  Transmission Date: 20111222
  Serious: No
  Sender: FDA-Public Use
  Company Number: US-PFIZER INC-US-WYE-H18186810

PATIENT
  Sex: Female
  Weight: 48.9 kg

DRUGS (6)
  1. CALCIUM [Concomitant]
  2. PREMARIN [Suspect]
     Indication: HOT FLUSH
     Dosage: 0.625 MG FOR FIVE DAYS THEN OFF TWO DAYS
     Route: 048
  3. VITAMIN D [Concomitant]
  4. LUTEIN [Concomitant]
  5. VITAMIN B [Concomitant]
  6. ASCORBIC ACID [Concomitant]

REACTIONS (3)
  - MACULAR DEGENERATION [None]
  - CATARACT [None]
  - DRUG INEFFECTIVE [None]
